FAERS Safety Report 4634911-9 (Version None)
Quarter: 2005Q2

REPORT INFORMATION
  Report Type: 
  Country: None (occurrence: None)
  Receive Date: 20050414
  Receipt Date: 20040303
  Transmission Date: 20051028
  Serious: Yes (Other)
  Sender: FDA-Public Use
  Company Number: PHEH2004US13846

PATIENT
  Age: 9 Year
  Sex: Female

DRUGS (1)
  1. FORADIL [Suspect]
     Route: 048

REACTIONS (3)
  - DEVICE FAILURE [None]
  - DIABETES MELLITUS [None]
  - MEDICATION ERROR [None]
